FAERS Safety Report 5294020-5 (Version None)
Quarter: 2007Q2

REPORT INFORMATION
  Report Type: 
  Country: None (occurrence: None)
  Receive Date: 20070405
  Receipt Date: 20070329
  Transmission Date: 20071010
  Serious: Yes (Hospitalization)
  Sender: FDA-Public Use
  Company Number: 232477K07USA

PATIENT
  Age: 49 Year
  Sex: Female
  Weight: 68.0396 kg

DRUGS (4)
  1. REBIF [Suspect]
     Indication: MULTIPLE SCLEROSIS
     Dosage: 44 MCG, 3 IN 1 WEEKS, SUBCUTANEOUS
     Route: 058
     Dates: start: 20021111
  2. INSULIN (INSULIN) [Concomitant]
  3. TOPAMAX [Concomitant]
  4. ALTACE [Concomitant]

REACTIONS (5)
  - BLOOD CHOLESTEROL INCREASED [None]
  - HYPOTENSION [None]
  - INFLUENZA LIKE ILLNESS [None]
  - INJECTION SITE IRRITATION [None]
  - KETOACIDOSIS [None]
